FAERS Safety Report 21220537 (Version 1)
Quarter: 2022Q3

REPORT INFORMATION
  Report Type: Spontaneous
  Country: IT (occurrence: IT)
  Receive Date: 20220817
  Receipt Date: 20220817
  Transmission Date: 20221026
  Serious: Yes (Other)
  Sender: FDA-Public Use
  Company Number: None

PATIENT
  Age: 60 Year
  Sex: Female
  Weight: 92 kg

DRUGS (1)
  1. PACLITAXEL [Suspect]
     Active Substance: PACLITAXEL
     Indication: Ovarian cancer
     Dosage: PACLITAXEL THREE TIMES A WEEK 175 MG / M2 , UNIT DOSE : 175 MG / M2 , FREQUENCY TIME : 1 WEEKS , ADD
     Dates: start: 20220722, end: 20220722

REACTIONS (2)
  - Chest discomfort [Recovering/Resolving]
  - Hyperhidrosis [Recovering/Resolving]

NARRATIVE: CASE EVENT DATE: 20220722
